FAERS Safety Report 8065112-2 (Version None)
Quarter: 2012Q1

REPORT INFORMATION
  Report Type: 
  Country: None (occurrence: None)
  Receive Date: 20120117
  Receipt Date: 20120106
  Transmission Date: 20120608
  Serious: Yes (Hospitalization, Disabling, Other)
  Sender: FDA-Public Use
  Company Number: 2011SP057079

PATIENT
  Age: 52 Year
  Sex: Male

DRUGS (17)
  1. NICODERM [Concomitant]
  2. CITALOPRAM [Concomitant]
  3. AMBIEN [Concomitant]
  4. PEG-INTRON [Suspect]
     Indication: HEPATITIS C
     Dosage: 15 MCG;QW;SC
     Route: 058
  5. LISINOPRIL AND HYDROCHLOROTHIAZIDE [Concomitant]
  6. HYDROCODONE BITARTRATE [Concomitant]
  7. COPEGUS [Suspect]
     Indication: HEPATITIS C
     Dosage: 200 MG;QD;PO
     Route: 048
  8. BENAZEPRIL HYDROCHLORIDE [Concomitant]
  9. ZOLPIDEM [Concomitant]
  10. HYDROCHLOROTHIAZIDE [Concomitant]
  11. VITRON C [Concomitant]
  12. CLARITIN [Concomitant]
  13. CLONIDINE [Concomitant]
  14. POTASSIUM CHLORIDE [Concomitant]
  15. REGLAN [Concomitant]
  16. VICTRELIS [Suspect]
     Indication: HEPATITIS C
     Dosage: PO
     Route: 048
     Dates: start: 20110812, end: 20110823
  17. LORCET-HD [Concomitant]

REACTIONS (13)
  - QUADRIPLEGIA [None]
  - LEUKOPENIA [None]
  - BLOOD ALBUMIN DECREASED [None]
  - MYOPATHY [None]
  - LENTIGO [None]
  - ASTHENIA [None]
  - HYPOKALAEMIA [None]
  - HAEMOLYTIC ANAEMIA [None]
  - RENAL FAILURE ACUTE [None]
  - ACTIVITIES OF DAILY LIVING IMPAIRED [None]
  - QUADRIPARESIS [None]
  - DEMYELINATING POLYNEUROPATHY [None]
  - RHABDOMYOLYSIS [None]
